FAERS Safety Report 10064208 (Version 2)
Quarter: 2014Q2

REPORT INFORMATION
  Report Type: Report from Study
  Country: CA (occurrence: CA)
  Receive Date: 20140408
  Receipt Date: 20140502
  Transmission Date: 20141212
  Serious: Yes (Other)
  Sender: FDA-Public Use
  Company Number: CA-JNJFOC-20140401385

PATIENT
  Age: 35 Year
  Sex: Female
  Weight: 72.7 kg

DRUGS (5)
  1. REMICADE [Suspect]
     Indication: CROHN^S DISEASE
     Route: 042
     Dates: start: 20140425
  2. REMICADE [Suspect]
     Indication: CROHN^S DISEASE
     Route: 042
     Dates: start: 20080423
  3. SOLUCORTEF [Concomitant]
     Indication: PREMEDICATION
     Route: 042
  4. BENADRYL [Concomitant]
     Indication: PREMEDICATION
     Route: 042
  5. MAXERAN [Concomitant]
     Indication: PREMEDICATION
     Route: 042

REACTIONS (3)
  - Exposure during pregnancy [Recovered/Resolved]
  - Caesarean section [Unknown]
  - Premature delivery [Recovered/Resolved]
